FAERS Safety Report 4750133-5 (Version None)
Quarter: 2005Q3

REPORT INFORMATION
  Report Type: 
  Country: None (occurrence: None)
  Receive Date: 20050823
  Receipt Date: 20050805
  Transmission Date: 20060218
  Serious: No
  Sender: FDA-Public Use
  Company Number: US-BOEHRINGER INGELHEIM PHARMACEUTICALS, INC.-2005-BP-13503BP

PATIENT
  Age: 88 Year
  Sex: Female

DRUGS (6)
  1. SPIRIVA [Suspect]
     Indication: LUNG INFECTION
     Route: 055
     Dates: start: 20050601
  2. LOTREL [Concomitant]
  3. DIOVAN [Concomitant]
  4. HYDROCHLOROTHIAZIDE [Concomitant]
  5. ACIPHEX [Concomitant]
  6. RHINOCORT [Concomitant]

REACTIONS (3)
  - BLOOD SODIUM DECREASED [None]
  - DEHYDRATION [None]
  - SYNCOPE [None]
